FAERS Safety Report 5990742-9 (Version None)
Quarter: 2008Q4

REPORT INFORMATION
  Report Type: 
  Country: None (occurrence: None)
  Receive Date: 20081211
  Receipt Date: 20081201
  Transmission Date: 20090506
  Serious: Yes (Hospitalization)
  Sender: FDA-Public Use
  Company Number: AT-WATSON-2008-07073

PATIENT
  Age: 77 Year
  Sex: Female

DRUGS (1)
  1. FIORINAL [Suspect]
     Indication: VARICOSE VEIN
     Dosage: 50 MG, DAILY
     Route: 048

REACTIONS (2)
  - EXTRADURAL HAEMATOMA [None]
  - SPONTANEOUS HAEMATOMA [None]
